FAERS Safety Report 4306765-1 (Version None)
Quarter: 2004Q1

REPORT INFORMATION
  Report Type: 
  Country: None (occurrence: None)
  Receive Date: 20040225
  Receipt Date: 20040209
  Transmission Date: 20041129
  Serious: Yes (Other)
  Sender: FDA-Public Use
  Company Number: US_0402100671

PATIENT
  Sex: Female

DRUGS (15)
  1. HUMALOG [Suspect]
     Dosage: 15 U
     Dates: start: 20000101
  2. HUMULIN U [Suspect]
     Dates: start: 19980101, end: 19990101
  3. INSULIN GLARGINE [Concomitant]
  4. METFORMIN [Concomitant]
  5. SERTRALINE HCL [Concomitant]
  6. ATENOLOL [Concomitant]
  7. QUINAPRIL HCL [Concomitant]
  8. ATORVASTATIN [Concomitant]
  9. CETIRIZINE HCL [Concomitant]
  10. CLONAZEPAM [Concomitant]
  11. MEDROXYPROGESTERONE [Concomitant]
  12. CELECOXIB [Concomitant]
  13. NITROGLYCERIN [Concomitant]
  14. CLOPIDOGREL BISULFATE [Concomitant]
  15. GLUCOPHAGE XR (METFORIN HYDROCHLORIDE) [Concomitant]

REACTIONS (12)
  - BLOOD GLUCOSE DECREASED [None]
  - BLOOD GLUCOSE INCREASED [None]
  - BLOOD PRESSURE IMMEASURABLE [None]
  - CARDIAC VALVE DISEASE [None]
  - CATARACT [None]
  - CORONARY ARTERY SURGERY [None]
  - EYE DISORDER [None]
  - FOOT FRACTURE [None]
  - PULSE ABSENT [None]
  - STRESS FRACTURE [None]
  - SUBCLAVIAN ARTERY EMBOLISM [None]
  - TACHYCARDIA [None]
